FAERS Safety Report 8430244-3 (Version None)
Quarter: 2012Q2

REPORT INFORMATION
  Report Type: 
  Country: None (occurrence: None)
  Receive Date: 20120612
  Receipt Date: 20120601
  Transmission Date: 20120825
  Serious: Yes (Other)
  Sender: FDA-Public Use
  Company Number: US-SHIONOGI, INC-2012000179

PATIENT
  Sex: Male
  Weight: 31.565 kg

DRUGS (2)
  1. KAPVAY [Suspect]
     Dosage: UNK
     Dates: start: 20120330, end: 20120101
  2. CONCERTA [Concomitant]
     Dosage: 54 MG, QD

REACTIONS (2)
  - MOOD SWINGS [None]
  - AGGRESSION [None]
